FAERS Safety Report 9117752 (Version 1)
Quarter: 2013Q1

REPORT INFORMATION
  Report Type: Spontaneous
  Country: US (occurrence: US)
  Receive Date: 20130225
  Receipt Date: 20130225
  Transmission Date: 20140127
  Serious: No
  Sender: FDA-Public Use
  Company Number: US-009507513-1302USA008210

PATIENT
  Age: 87 Year
  Sex: Male

DRUGS (2)
  1. LISINOPRIL [Suspect]
     Indication: ATRIAL FIBRILLATION
     Dosage: UNK
     Route: 048
  2. METOPROLOL TARTRATE [Concomitant]
     Dosage: UNK

REACTIONS (1)
  - Hyponatraemia [Recovered/Resolved]
